FAERS Safety Report 10279551 (Version 1)
Quarter: 2014Q3

REPORT INFORMATION
  Report Type: Spontaneous
  Country: US (occurrence: None)
  Receive Date: 20140702
  Receipt Date: 20140702
  Transmission Date: 20150326
  Serious: No
  Sender: FDA-Public Use
  Company Number: None

PATIENT
  Age: 90 Year
  Sex: Female
  Weight: 61.24 kg

DRUGS (2)
  1. CARBOPLATIN. [Suspect]
     Active Substance: CARBOPLATIN
     Dosage: AUC 5
  2. TAXOL [Suspect]
     Active Substance: PACLITAXEL
     Dosage: 60 MG/M2- RECIEVED TRETMENT ON D1 (06/09/14) + D8 (06/16/14). D15 OMITTED D/T PATIENT^S ADMISSION

REACTIONS (5)
  - Fall [None]
  - Femur fracture [None]
  - International normalised ratio decreased [None]
  - Anaemia [None]
  - Hip fracture [None]

NARRATIVE: CASE EVENT DATE: 20140620
